FAERS Safety Report 7919009-6 (Version None)
Quarter: 2011Q4

REPORT INFORMATION
  Report Type: 
  Country: None (occurrence: None)
  Receive Date: 20111116
  Receipt Date: 20111107
  Transmission Date: 20120403
  Serious: Yes (Other)
  Sender: FDA-Public Use
  Company Number: CA-ASTRAZENECA-2011SE67231

PATIENT
  Age: 77 Year
  Sex: Male
  Weight: 70.3 kg

DRUGS (2)
  1. CRESTOR [Suspect]
     Route: 048
  2. ENALAPRIL MALEATE [Concomitant]

REACTIONS (9)
  - INDIFFERENCE [None]
  - ASTHENIA [None]
  - FATIGUE [None]
  - HYPERHIDROSIS [None]
  - DIZZINESS [None]
  - PAIN [None]
  - BLOOD PRESSURE INCREASED [None]
  - MALAISE [None]
  - DISCOMFORT [None]
